FAERS Safety Report 9052609 (Version 2)
Quarter: 2013Q4

REPORT INFORMATION
  Report Type: Report from Study
  Country: US (occurrence: US)
  Receive Date: 20130207
  Receipt Date: 20131009
  Transmission Date: 20140711
  Serious: Yes (Other)
  Sender: FDA-Public Use
  Company Number: US-BAYER-2012-118363

PATIENT
  Age: 77 Year
  Sex: Male

DRUGS (15)
  1. NEXAVAR [Suspect]
     Indication: HEPATIC CANCER
     Dosage: 400 MG, BID
     Dates: start: 20120404, end: 20121030
  2. NEXAVAR [Suspect]
     Indication: HEPATIC CANCER
     Dosage: UNK
     Route: 048
     Dates: start: 201212
  3. NEXAVAR [Suspect]
     Indication: HEPATIC CANCER
     Dosage: UNK, UNK, BID
     Route: 048
     Dates: start: 20130325
  4. NEXAVAR [Suspect]
     Indication: HEPATIC CANCER
     Dosage: 400 MG, BID
     Route: 048
     Dates: start: 2013
  5. COLCHICINE [Concomitant]
     Route: 048
  6. COLESTIPOL [Concomitant]
     Route: 048
  7. CYANOCOBALAMIN [Concomitant]
     Route: 048
  8. FEBUXOSTAT [Concomitant]
     Route: 048
  9. FENOFIBRATE [Concomitant]
     Route: 048
  10. FERROUS SULFATE [Concomitant]
     Route: 048
  11. GLUCAGON [Concomitant]
     Route: 030
  12. LEVOTHYROXINE [Concomitant]
     Route: 048
  13. LISINOPRIL [Concomitant]
     Route: 048
  14. OMEPRAZOLE [Concomitant]
  15. TESSALON [Concomitant]
     Route: 048

REACTIONS (14)
  - Ascites [Recovering/Resolving]
  - Laboratory test abnormal [Not Recovered/Not Resolved]
  - Asthenia [Recovering/Resolving]
  - Decreased appetite [Recovering/Resolving]
  - Dyspnoea exertional [None]
  - Alpha 1 foetoprotein increased [Not Recovered/Not Resolved]
  - Rash pruritic [None]
  - Waist circumference increased [None]
  - Oedema peripheral [None]
  - Arthritis [None]
  - Insomnia [None]
  - Hypoaesthesia [None]
  - Mobility decreased [None]
  - Hepatic cancer [None]
